FAERS Safety Report 8984784 (Version 1)
Quarter: 2012Q4

REPORT INFORMATION
  Report Type: 
  Country: US (occurrence: US)
  Receive Date: 20121226
  Receipt Date: 20121226
  Transmission Date: 20130627
  Serious: Yes (Other)
  Sender: FDA-Public Use
  Company Number: US-BAYER-2012-134405

PATIENT
  Age: 24 Year
  Sex: Female

DRUGS (4)
  1. YAZ [Suspect]
  2. YASMIN [Suspect]
  3. CELLCEPT [Concomitant]
  4. PLAQUENIL [Concomitant]

REACTIONS (2)
  - Deep vein thrombosis [None]
  - Transient ischaemic attack [None]
